FAERS Safety Report 10818579 (Version 1)
Quarter: 2015Q1

REPORT INFORMATION
  Report Type: Spontaneous
  Country: US (occurrence: US)
  Receive Date: 20150218
  Receipt Date: 20150218
  Transmission Date: 20150721
  Serious: No
  Sender: FDA-Public Use
  Company Number: US-EISAI MEDICAL RESEARCH-E2007-01662-SPO-US

PATIENT
  Sex: Female

DRUGS (9)
  1. FYCOMPA [Suspect]
     Active Substance: PERAMPANEL
     Route: 048
     Dates: start: 201403, end: 201403
  2. FYCOMPA [Suspect]
     Active Substance: PERAMPANEL
     Route: 048
     Dates: start: 201404, end: 201404
  3. FYCOMPA [Suspect]
     Active Substance: PERAMPANEL
     Route: 048
     Dates: start: 201404, end: 201404
  4. FYCOMPA [Suspect]
     Active Substance: PERAMPANEL
     Indication: LENNOX-GASTAUT SYNDROME
     Route: 048
     Dates: start: 201403, end: 201403
  5. DILANTIN [Concomitant]
     Active Substance: PHENYTOIN
     Indication: LENNOX-GASTAUT SYNDROME
  6. FYCOMPA [Suspect]
     Active Substance: PERAMPANEL
     Dosage: 10 MG (4 MG IN AM/6 MG IN PM)
     Route: 048
     Dates: start: 201404
  7. KEPPRA [Concomitant]
     Active Substance: LEVETIRACETAM
     Indication: LENNOX-GASTAUT SYNDROME
  8. BANZEL [Suspect]
     Active Substance: RUFINAMIDE
     Indication: LENNOX-GASTAUT SYNDROME
     Dosage: UNKNOWN
     Route: 048
     Dates: end: 201403
  9. LOCASAMIDE [Concomitant]
     Indication: LENNOX-GASTAUT SYNDROME

REACTIONS (4)
  - Blood pressure decreased [Recovered/Resolved]
  - Sedation [Recovering/Resolving]
  - Off label use [Recovering/Resolving]
  - Drug ineffective [Recovered/Resolved]

NARRATIVE: CASE EVENT DATE: 201403
